FAERS Safety Report 16872153 (Version 1)
Quarter: 2019Q4

REPORT INFORMATION
  Report Type: Spontaneous
  Country: US (occurrence: US)
  Receive Date: 20191001
  Receipt Date: 20191001
  Transmission Date: 20200122
  Serious: No
  Sender: FDA-Public Use
  Company Number: US-ALLERGAN-1923233US

PATIENT
  Sex: Female

DRUGS (5)
  1. VRAYLAR [Suspect]
     Active Substance: CARIPRAZINE
     Dosage: 1.5 MG
     Route: 065
  2. VRAYLAR [Suspect]
     Active Substance: CARIPRAZINE
     Indication: BIPOLAR II DISORDER
     Dosage: 1.5 MG, QAM
     Route: 065
  3. VIIBRYD [Suspect]
     Active Substance: VILAZODONE HYDROCHLORIDE
     Indication: BIPOLAR II DISORDER
     Dosage: 40 MG
     Route: 065
  4. LAMOTRIGINE. [Concomitant]
     Active Substance: LAMOTRIGINE
     Dosage: 200 MG
  5. LORAZEPAM. [Concomitant]
     Active Substance: LORAZEPAM
     Dosage: 0.5-1 MG, QHS

REACTIONS (2)
  - Restlessness [Recovered/Resolved]
  - Off label use [Unknown]
